FAERS Safety Report 13592302 (Version 2)
Quarter: 2017Q3

REPORT INFORMATION
  Report Type: Spontaneous
  Country: US (occurrence: US)
  Receive Date: 20170530
  Receipt Date: 20170804
  Transmission Date: 20171127
  Serious: Yes (Other)
  Sender: FDA-Public Use
  Company Number: US-OREXIGEN THERAPEUTICS, INC.-2021352

PATIENT
  Age: 65 Year
  Sex: Female

DRUGS (5)
  1. HYDROCODONE [Suspect]
     Active Substance: HYDROCODONE
     Route: 065
  2. DIURETIC [Concomitant]
     Active Substance: UNSPECIFIED INGREDIENT
     Route: 065
     Dates: start: 2014
  3. CONTRAVE [Suspect]
     Active Substance: BUPROPION HYDROCHLORIDE\NALTREXONE HYDROCHLORIDE
     Indication: WEIGHT CONTROL
     Route: 048
     Dates: start: 20170120, end: 20170120
  4. FENTANYL. [Suspect]
     Active Substance: FENTANYL
     Route: 037
  5. PREVACID [Concomitant]
     Active Substance: LANSOPRAZOLE
     Route: 065

REACTIONS (1)
  - Loss of consciousness [Recovered/Resolved]

NARRATIVE: CASE EVENT DATE: 20170120
